FAERS Safety Report 17000436 (Version 3)
Quarter: 2020Q1

REPORT INFORMATION
  Report Type: Spontaneous
  Country: JP (occurrence: JP)
  Receive Date: 20191106
  Receipt Date: 20200226
  Transmission Date: 20200409
  Serious: Yes (Hospitalization, Disabling)
  Sender: FDA-Public Use
  Company Number: JP-ELI_LILLY_AND_COMPANY-JP201910013067

PATIENT
  Age: 73 Year
  Sex: Male
  Weight: 50 kg

DRUGS (8)
  1. LEUCOVORIN CA [Concomitant]
     Active Substance: LEUCOVORIN CALCIUM
     Indication: COLON CANCER
     Dosage: UNK
     Route: 041
     Dates: start: 20190913
  2. IRINOTECAN [Suspect]
     Active Substance: IRINOTECAN
     Indication: COLON CANCER
     Dosage: 200 MG, CYCLICAL
     Route: 041
     Dates: start: 20190315
  3. TAKECAB [Concomitant]
     Active Substance: VONOPRAZAN FUMURATE
     Indication: GASTRITIS
     Dosage: 10 MG, DAILY
     Route: 048
     Dates: start: 20180826, end: 20191118
  4. CYRAMZA [Suspect]
     Active Substance: RAMUCIRUMAB
     Indication: COLON CANCER
     Dosage: 8 MG/KG, CYCLICAL
     Route: 041
     Dates: start: 20190913, end: 20190913
  5. IRINOTECAN [Suspect]
     Active Substance: IRINOTECAN
     Dosage: 140 MG, CYCLICAL
     Route: 041
     Dates: start: 20190913, end: 20190913
  6. MAGMITT [Concomitant]
     Active Substance: MAGNESIUM OXIDE
     Indication: DYSCHEZIA
     Dosage: 2 MG, DAILY
     Route: 048
     Dates: end: 20191118
  7. FLUOROURACIL. [Concomitant]
     Active Substance: FLUOROURACIL
     Dosage: 3000 MG, CYCLICAL
     Route: 041
     Dates: start: 20190913, end: 20190915
  8. FLUOROURACIL. [Concomitant]
     Active Substance: FLUOROURACIL
     Indication: COLON CANCER
     Dosage: 500 MG, CYCLICAL
     Route: 040
     Dates: start: 20190913, end: 20190913

REACTIONS (3)
  - Rhabdomyolysis [Not Recovered/Not Resolved]
  - Dehydration [Unknown]
  - Decreased appetite [Unknown]

NARRATIVE: CASE EVENT DATE: 201905
